FAERS Safety Report 4524644-1 (Version None)
Quarter: 2004Q4

REPORT INFORMATION
  Report Type: 
  Country: None (occurrence: None)
  Receive Date: 20041117
  Receipt Date: 20030829
  Transmission Date: 20050328
  Serious: Yes (Other)
  Sender: FDA-Public Use
  Company Number: C2003-2316.01

PATIENT
  Age: 50 Year
  Sex: Male

DRUGS (4)
  1. CLOZAPINE [Suspect]
     Indication: SCHIZOPHRENIA
     Dosage: ORAL
     Route: 048
     Dates: start: 20030731, end: 20030806
  2. TRIFLUOPERAZINE HCL [Concomitant]
  3. RISPERIDONE [Concomitant]
  4. NAPROXEN [Concomitant]

REACTIONS (1)
  - NEUTROPENIA [None]
